FAERS Safety Report 7245971-3 (Version None)
Quarter: 2011Q1

REPORT INFORMATION
  Report Type: 
  Country: None (occurrence: None)
  Receive Date: 20110126
  Receipt Date: 20050803
  Transmission Date: 20110831
  Serious: Yes (Other)
  Sender: FDA-Public Use
  Company Number: PHHY2005CA02210

PATIENT
  Sex: Female

DRUGS (6)
  1. ASAPHEN [Concomitant]
  2. PANTOLOC [Concomitant]
  3. COZAAR [Concomitant]
  4. CALCIUM [Concomitant]
  5. FOSAMAX [Concomitant]
  6. SANDOSTATIN LAR [Suspect]
     Indication: NEUROENDOCRINE TUMOUR
     Dosage: 20 MG EVERY 4 WEEKS
     Dates: start: 20050414

REACTIONS (1)
  - LUNG NEOPLASM SURGERY [None]
